FAERS Safety Report 8300934-1 (Version None)
Quarter: 2012Q2

REPORT INFORMATION
  Report Type: 
  Country: None (occurrence: None)
  Receive Date: 20120418
  Receipt Date: 20120418
  Transmission Date: 20120825
  Serious: Yes (Life-Threatening)
  Sender: FDA-Public Use
  Company Number: None

PATIENT
  Sex: Male

DRUGS (2)
  1. RIBAVIRIN [Suspect]
     Indication: HEPATITIS C
     Dosage: 600 MG BID ORAL
     Route: 048
     Dates: start: 20120306, end: 20120328
  2. PEG-INTRON [Suspect]
     Indication: HEPATITIS C
     Dosage: 150MCG WEEKLY SQ
     Route: 058
     Dates: start: 20120306, end: 20120328

REACTIONS (6)
  - NAUSEA [None]
  - BACK PAIN [None]
  - PRURITUS [None]
  - DISCOMFORT [None]
  - FLUID RETENTION [None]
  - DRY SKIN [None]
